FAERS Safety Report 25331250 (Version 2)
Quarter: 2025Q2

REPORT INFORMATION
  Report Type: Spontaneous
  Country: US (occurrence: US)
  Receive Date: 20250519
  Receipt Date: 20250522
  Transmission Date: 20250717
  Serious: Yes (Other)
  Sender: PFIZER
  Company Number: US-PFIZER INC-202500098569

PATIENT
  Age: 25 Year
  Sex: Male

DRUGS (2)
  1. VELSIPITY [Suspect]
     Active Substance: ETRASIMOD ARGININE
     Indication: Crohn^s disease
     Route: 048
     Dates: start: 20240821
  2. VELSIPITY [Suspect]
     Active Substance: ETRASIMOD ARGININE
     Route: 048
     Dates: start: 20250513

REACTIONS (5)
  - Rectal haemorrhage [Unknown]
  - Condition aggravated [Unknown]
  - Off label use [Unknown]
  - Heart rate decreased [Unknown]
  - Headache [Unknown]

NARRATIVE: CASE EVENT DATE: 20240821
